FAERS Safety Report 24061221 (Version 1)
Quarter: 2024Q3

REPORT INFORMATION
  Report Type: Spontaneous
  Country: GB (occurrence: GB)
  Receive Date: 20240708
  Receipt Date: 20240708
  Transmission Date: 20241017
  Serious: Yes (Hospitalization, Other)
  Sender: MYOVANT SCIENCES
  Company Number: None

PATIENT
  Sex: Female
  Weight: 73 kg

DRUGS (1)
  1. ESTRADIOL\NORETHINDRONE ACETATE\RELUGOLIX [Suspect]
     Active Substance: ESTRADIOL\NORETHINDRONE ACETATE\RELUGOLIX
     Indication: Menstruation delayed
     Dosage: UNK
     Route: 065
     Dates: end: 20240611

REACTIONS (5)
  - Joint swelling [Recovered/Resolved]
  - Rash erythematous [Recovered/Resolved]
  - Arthritis [Recovered/Resolved]
  - Medication error [Unknown]
  - Feeling abnormal [Unknown]
